FAERS Safety Report 7672794-3 (Version None)
Quarter: 2011Q3

REPORT INFORMATION
  Report Type: 
  Country: None (occurrence: None)
  Receive Date: 20110804
  Receipt Date: 20110721
  Transmission Date: 20111222
  Serious: Yes (Other)
  Sender: FDA-Public Use
  Company Number: TCI2011A04193

PATIENT
  Age: 66 Year
  Sex: Male

DRUGS (6)
  1. URALYT (SODIUM CITRATE ACID, POTASSIUM CITRATE) [Concomitant]
  2. CRESTOR (ROSUMVASTATIN CALCIUM) [Concomitant]
  3. METFORMIN HYDROCHLORIDE [Concomitant]
  4. ACTOS [Suspect]
     Indication: DIABETES MELLITUS
     Dosage: 15 MG (15 MG,1 D) PER ORAL
     Route: 048
     Dates: start: 20090120, end: 20100118
  5. GLUCOBAY [Concomitant]
  6. AMARYL [Concomitant]

REACTIONS (1)
  - MALIGNANT NEOPLASM OF RENAL PELVIS [None]
